FAERS Safety Report 4411094-1 (Version None)
Quarter: 2004Q2

REPORT INFORMATION
  Report Type: 
  Country: None (occurrence: None)
  Receive Date: 20040630
  Receipt Date: 20040511
  Transmission Date: 20050107
  Serious: No
  Sender: FDA-Public Use
  Company Number: 04P-163-0260360-00

PATIENT
  Age: 67 Year
  Sex: Female
  Weight: 73.9363 kg

DRUGS (6)
  1. HUMIRA [Suspect]
     Indication: RHEUMATOID ARTHRITIS
     Dosage: 40 MG, 1 IN 2 WK, SUBCUTANEOUS
     Route: 058
     Dates: start: 20030701, end: 20040319
  2. METHOTREXATE [Concomitant]
  3. FOLIC ACID [Concomitant]
  4. METOPROLOL SUCCINATE [Concomitant]
  5. LANSOPRAZOLE [Concomitant]
  6. ZETIA [Concomitant]

REACTIONS (4)
  - MUSCULAR WEAKNESS [None]
  - OEDEMA PERIPHERAL [None]
  - PHARYNGOLARYNGEAL PAIN [None]
  - RHEUMATOID ARTHRITIS [None]
